FAERS Safety Report 9112905 (Version 1)
Quarter: 2013Q1

REPORT INFORMATION
  Report Type: Spontaneous
  Country: US (occurrence: US)
  Receive Date: 20130211
  Receipt Date: 20130211
  Transmission Date: 20140127
  Serious: Yes (Hospitalization, Other)
  Sender: FDA-Public Use
  Company Number: US-PFIZER INC-2013055462

PATIENT
  Age: 43 Year
  Sex: Female
  Weight: 90.7 kg

DRUGS (4)
  1. LYRICA [Suspect]
     Indication: NERVE INJURY
     Dosage: 100 MG, 3X/DAY
  2. METFORMIN [Concomitant]
     Indication: DIABETES MELLITUS
     Dosage: 500 MG/DAY
  3. BENAZEPRIL [Concomitant]
     Indication: HYPERTENSION
     Dosage: 10 MG/DAY
  4. SIMVASTATIN [Concomitant]
     Indication: BLOOD CHOLESTEROL INCREASED
     Dosage: 40 MG/DAY

REACTIONS (4)
  - Blister [Recovered/Resolved]
  - Hypersensitivity [Unknown]
  - Ear disorder [Unknown]
  - Vertigo [Unknown]
